FAERS Safety Report 21187689 (Version 1)
Quarter: 2022Q3

REPORT INFORMATION
  Report Type: Spontaneous
  Country: FR (occurrence: FR)
  Receive Date: 20220808
  Receipt Date: 20220808
  Transmission Date: 20221027
  Serious: Yes (Life-Threatening, Other)
  Sender: FDA-Public Use
  Company Number: None

PATIENT
  Age: 51 Year
  Sex: Female

DRUGS (15)
  1. TRAMADOL HYDROCHLORIDE [Suspect]
     Active Substance: TRAMADOL HYDROCHLORIDE
     Indication: Product used for unknown indication
     Dosage: 100 UNK, 1/DAY
     Route: 065
     Dates: end: 20220605
  2. ACETAMINOPHEN\OPIUM [Suspect]
     Active Substance: ACETAMINOPHEN\OPIUM
     Indication: Product used for unknown indication
     Dosage: 1 DOSAGE FORM, 3/DAY
     Route: 065
     Dates: end: 20220605
  3. FENOFIBRATE [Suspect]
     Active Substance: FENOFIBRATE
     Indication: Product used for unknown indication
     Dosage: 160 MILLIGRAM, 1/DAY
     Route: 048
     Dates: end: 20220605
  4. DEPAKOTE [Suspect]
     Active Substance: DIVALPROEX SODIUM
     Indication: Fibromyalgia
     Dosage: 1250 MILLIGRAM
     Route: 048
     Dates: end: 20220605
  5. ESOMEPRAZOLE [Concomitant]
     Active Substance: ESOMEPRAZOLE
     Indication: Product used for unknown indication
     Dosage: 40 MILLIGRAM, 1/DAY
     Route: 065
  6. BISOPROLOL FUMARATE\HYDROCHLOROTHIAZIDE [Concomitant]
     Active Substance: BISOPROLOL FUMARATE\HYDROCHLOROTHIAZIDE
     Indication: Product used for unknown indication
     Dosage: 1 DOSAGE FORM, 1/DAY
     Route: 065
     Dates: end: 20220605
  7. OXAZEPAM [Concomitant]
     Active Substance: OXAZEPAM
     Indication: Fibromyalgia
     Dosage: 50 MILLIGRAM, 2/DAY
     Route: 048
     Dates: end: 20220605
  8. STELARA [Concomitant]
     Active Substance: USTEKINUMAB
     Indication: Rheumatic disorder
     Dosage: 1 DOSAGE FORM, 1/MONTH
     Route: 065
     Dates: end: 202203
  9. CYMBALTA [Concomitant]
     Active Substance: DULOXETINE HYDROCHLORIDE
     Indication: Fibromyalgia
     Dosage: 60 MILLIGRAM
     Route: 048
     Dates: end: 20220605
  10. FUROSEMIDE [Concomitant]
     Active Substance: FUROSEMIDE
     Indication: Product used for unknown indication
     Dosage: 20 MILLIGRAM, 1/DAY
     Route: 065
     Dates: end: 20220605
  11. TRIMEPRAZINE [Concomitant]
     Active Substance: TRIMEPRAZINE
     Indication: Depression
     Dosage: UNK
     Route: 065
     Dates: end: 20220605
  12. IMOVANE [Concomitant]
     Active Substance: ZOPICLONE
     Indication: Depression
     Dosage: 7.5 MILLIGRAM
     Route: 048
     Dates: end: 20220605
  13. PACLITAXEL [Concomitant]
     Active Substance: PACLITAXEL
     Indication: Breast cancer
     Dosage: 80 MILLIGRAM/SQ. METER
     Route: 042
     Dates: start: 202101, end: 20220404
  14. AMISULPRIDE [Concomitant]
     Active Substance: AMISULPRIDE
     Indication: Fibromyalgia
     Dosage: 100 MILLIGRAM
     Route: 048
     Dates: end: 20220605
  15. SPIRONOLACTONE [Concomitant]
     Active Substance: SPIRONOLACTONE
     Indication: Product used for unknown indication
     Dosage: 25 MILLIGRAM, 1/DAY
     Route: 065
     Dates: end: 20220605

REACTIONS (1)
  - Pancreatitis acute [Not Recovered/Not Resolved]

NARRATIVE: CASE EVENT DATE: 20220603
